FAERS Safety Report 25715843 (Version 1)
Quarter: 2025Q3

REPORT INFORMATION
  Report Type: Report from Study
  Country: US (occurrence: US)
  Receive Date: 20250822
  Receipt Date: 20250822
  Transmission Date: 20251021
  Serious: No
  Sender: SUNOVION
  Company Number: US-SUMITOMO PHARMA SWITZERLAND GMBH-2025SPA010590

PATIENT
  Age: 62 Year
  Sex: Male

DRUGS (4)
  1. ORGOVYX [Suspect]
     Active Substance: RELUGOLIX
     Indication: Prostate cancer
     Route: 048
     Dates: start: 20250725, end: 20250725
  2. ORGOVYX [Suspect]
     Active Substance: RELUGOLIX
     Route: 048
  3. OMEPRAZOLE [Concomitant]
     Active Substance: OMEPRAZOLE
  4. TADALAFIL [Concomitant]
     Active Substance: TADALAFIL

REACTIONS (2)
  - Fatigue [Unknown]
  - Headache [Unknown]
